FAERS Safety Report 15211222 (Version 1)
Quarter: 2018Q3

REPORT INFORMATION
  Report Type: Spontaneous
  Country: US (occurrence: US)
  Receive Date: 20180701
  Receipt Date: 20180701
  Transmission Date: 20181010
  Serious: Yes (Other)
  Sender: FDA-Public Use
  Company Number: None

PATIENT
  Age: 69 Year
  Sex: Male
  Weight: 94.5 kg

DRUGS (1)
  1. LOSARTAN POTASSIUM 68645?411?54... LOSARTAN POTASSIUM 100MG 68645?54 [Suspect]
     Active Substance: LOSARTAN POTASSIUM
     Indication: HYPERTENSION
     Route: 048
     Dates: start: 20180701

REACTIONS (3)
  - Product appearance confusion [None]
  - Accidental overdose [None]
  - Product substitution issue [None]

NARRATIVE: CASE EVENT DATE: 20180701
